FAERS Safety Report 6729871-0 (Version None)
Quarter: 2010Q2

REPORT INFORMATION
  Report Type: 
  Country: None (occurrence: None)
  Receive Date: 20100518
  Receipt Date: 20100414
  Transmission Date: 20101027
  Serious: No
  Sender: FDA-Public Use
  Company Number: US-BAYER-201014350BCC

PATIENT
  Age: 76 Year
  Sex: Female

DRUGS (2)
  1. ALEVE (CAPLET) [Suspect]
     Indication: PAIN IN EXTREMITY
     Route: 065
  2. RECLAST [Concomitant]
     Dates: start: 20100326

REACTIONS (1)
  - PAIN IN EXTREMITY [None]
